FAERS Safety Report 9862750 (Version 1)
Quarter: 2014Q1

REPORT INFORMATION
  Report Type: Spontaneous
  Country: US (occurrence: US)
  Receive Date: 20140203
  Receipt Date: 20140203
  Transmission Date: 20141002
  Serious: Yes (Death)
  Sender: FDA-Public Use
  Company Number: CHPA2014US001860

PATIENT
  Age: 47 Year
  Sex: Male

DRUGS (9)
  1. DIPHENHYDRAMINE [Suspect]
     Route: 065
  2. DEXTROMETHORPHAN HYDROBROMIDE [Suspect]
     Route: 065
  3. HEROIN [Suspect]
     Route: 065
  4. FLUOXETINE [Suspect]
     Route: 065
  5. BUPROPION [Suspect]
     Route: 065
  6. BENZTROPINE [Suspect]
     Route: 065
  7. QUININE [Suspect]
     Route: 065
  8. DILTIAZEM [Suspect]
     Route: 065
  9. ETHANOL [Suspect]
     Route: 065

REACTIONS (1)
  - Intentional drug misuse [Fatal]
